FAERS Safety Report 17130678 (Version 1)
Quarter: 2019Q4

REPORT INFORMATION
  Report Type: Spontaneous
  Country: FR (occurrence: FR)
  Receive Date: 20191209
  Receipt Date: 20191209
  Transmission Date: 20200122
  Serious: Yes (Hospitalization, Other)
  Sender: FDA-Public Use
  Company Number: NVSC2019FR056968

PATIENT
  Age: 25 Year
  Sex: Female

DRUGS (18)
  1. DIAZEPAM. [Suspect]
     Active Substance: DIAZEPAM
     Indication: PSYCHOMOTOR HYPERACTIVITY
     Dosage: 10 MG, ONCE/SINGLE
     Route: 030
  2. PREDNISOLONE. [Suspect]
     Active Substance: PREDNISOLONE
     Indication: PSYCHOTIC DISORDER
     Dosage: STARTING DOSE OF 1MG/KG PER DAY
     Route: 048
  3. LOXAPINE. [Suspect]
     Active Substance: LOXAPINE
     Indication: PSYCHOMOTOR HYPERACTIVITY
  4. CYCLOPHOSPHAMIDE. [Suspect]
     Active Substance: CYCLOPHOSPHAMIDE
     Indication: SYSTEMIC LUPUS ERYTHEMATOSUS
     Dosage: UNK
     Route: 065
  5. DIAZEPAM. [Suspect]
     Active Substance: DIAZEPAM
     Indication: AGGRESSION
     Dosage: UNK
     Route: 065
  6. HYDROXYCHLOROQUINE [Suspect]
     Active Substance: HYDROXYCHLOROQUINE
     Indication: PSYCHOTIC DISORDER
     Dosage: UNK
     Route: 048
  7. PREDNISOLONE. [Suspect]
     Active Substance: PREDNISOLONE
     Indication: SYSTEMIC LUPUS ERYTHEMATOSUS
     Route: 065
  8. TROPATEPINE [Suspect]
     Active Substance: TROPATEPINE
     Indication: EXTRAPYRAMIDAL DISORDER
     Dosage: UNK
     Route: 065
  9. HYDROXYCHLOROQUINE [Suspect]
     Active Substance: HYDROXYCHLOROQUINE
     Indication: SYSTEMIC LUPUS ERYTHEMATOSUS
  10. VALPROATE [Suspect]
     Active Substance: VALPROIC ACID
     Indication: MANIA
     Dosage: UP TO 2G/D
     Route: 065
  11. AMISULPRIDE [Suspect]
     Active Substance: AMISULPRIDE
     Indication: PSYCHOTIC DISORDER
     Dosage: UNK
     Route: 065
  12. METHYLPREDNISOLONE. [Suspect]
     Active Substance: METHYLPREDNISOLONE
     Indication: SYSTEMIC LUPUS ERYTHEMATOSUS
     Dosage: UNK
     Route: 065
  13. METHYLPREDNISOLONE. [Suspect]
     Active Substance: METHYLPREDNISOLONE
     Indication: PSYCHOTIC DISORDER
     Dosage: 500 MG
     Route: 042
  14. CYAMEMAZINE [Suspect]
     Active Substance: CYAMEMAZINE
     Indication: PSYCHOTIC DISORDER
     Dosage: HIGH-DOSE/ OVER 3 WEEKS
     Route: 065
  15. CYCLOPHOSPHAMIDE. [Suspect]
     Active Substance: CYCLOPHOSPHAMIDE
     Indication: PSYCHOTIC DISORDER
  16. OLANZAPINE. [Suspect]
     Active Substance: OLANZAPINE
     Indication: PSYCHOTIC DISORDER
     Dosage: UP TO 20 MG/D
     Route: 065
  17. LOXAPINE. [Suspect]
     Active Substance: LOXAPINE
     Indication: AGGRESSION
     Dosage: 100 MG
     Route: 030
  18. HALOPERIDOL. [Suspect]
     Active Substance: HALOPERIDOL
     Indication: PSYCHOTIC DISORDER
     Dosage: UNK
     Route: 065

REACTIONS (25)
  - Muscle rigidity [Recovered/Resolved]
  - Delusion [Recovered/Resolved]
  - Withdrawal syndrome [Recovered/Resolved]
  - Negativism [Recovered/Resolved]
  - Agitation [Recovered/Resolved]
  - Salivary hypersecretion [Recovered/Resolved]
  - Distractibility [Recovered/Resolved]
  - Cogwheel rigidity [Recovered/Resolved]
  - Cyclothymic disorder [Recovered/Resolved]
  - Tremor [Recovered/Resolved]
  - Drug ineffective [Unknown]
  - Catatonia [Recovered/Resolved]
  - Psychomotor hyperactivity [Recovered/Resolved]
  - Extrapyramidal disorder [Recovered/Resolved]
  - Drug resistance [Unknown]
  - Waxy flexibility [Recovered/Resolved]
  - Logorrhoea [Recovered/Resolved]
  - Insomnia [Recovered/Resolved]
  - Hallucination, auditory [Recovered/Resolved]
  - Euphoric mood [Recovered/Resolved]
  - Aggression [Recovered/Resolved]
  - Pneumonia aspiration [Recovered/Resolved]
  - Mutism [Recovered/Resolved]
  - Immobile [Recovered/Resolved]
  - Mania [Recovered/Resolved]
